FAERS Safety Report 9580780 (Version 1)
Quarter: 2013Q3

REPORT INFORMATION
  Report Type: Spontaneous
  Country: US (occurrence: None)
  Receive Date: 20130930
  Receipt Date: 20130930
  Transmission Date: 20140515
  Serious: Yes (Death)
  Sender: FDA-Public Use
  Company Number: 1309-1213

PATIENT
  Age: 91 Year
  Sex: Female

DRUGS (1)
  1. EYLEA (AFLIBERCEPT) ( INJECTION) (AFLIBERCEPT) [Suspect]
     Dates: start: 201204, end: 201211

REACTIONS (1)
  - Death [None]
